FAERS Safety Report 7506907-0 (Version None)
Quarter: 2011Q2

REPORT INFORMATION
  Report Type: 
  Country: None (occurrence: None)
  Receive Date: 20110526
  Receipt Date: 20110513
  Transmission Date: 20111010
  Serious: Yes (Hospitalization)
  Sender: FDA-Public Use
  Company Number: JP-JNJFOC-20100510545

PATIENT
  Sex: Female
  Weight: 58 kg

DRUGS (7)
  1. RHEUMATREX [Suspect]
     Indication: RHEUMATOID ARTHRITIS
     Route: 048
     Dates: start: 20081215, end: 20090308
  2. RHEUMATREX [Suspect]
     Route: 048
     Dates: start: 20090309, end: 20100409
  3. METHYCOBAL [Concomitant]
     Indication: CUBITAL TUNNEL SYNDROME
     Dates: start: 20080825, end: 20100409
  4. AZULFIDINE [Concomitant]
     Indication: RHEUMATOID ARTHRITIS
     Route: 048
     Dates: start: 20080829, end: 20080902
  5. AZULFIDINE [Concomitant]
     Route: 048
     Dates: start: 20080903, end: 20100409
  6. REMICADE [Suspect]
     Dosage: 6 INFUSIONS
     Route: 042
     Dates: start: 20100301
  7. REMICADE [Suspect]
     Indication: RHEUMATOID ARTHRITIS
     Route: 042
     Dates: start: 20090803

REACTIONS (1)
  - EXTRANODAL MARGINAL ZONE B-CELL LYMPHOMA (MALT TYPE) [None]
